FAERS Safety Report 19641016 (Version 1)
Quarter: 2021Q3

REPORT INFORMATION
  Report Type: Spontaneous
  Country: US (occurrence: US)
  Receive Date: 20210729
  Receipt Date: 20210729
  Transmission Date: 20211014
  Serious: No
  Sender: FDA-Public Use
  Company Number: US-PERRIGO-21US005832

PATIENT

DRUGS (1)
  1. MINOXIDIL. [Suspect]
     Active Substance: MINOXIDIL
     Indication: ALOPECIA
     Dosage: UNKNOWN, UNKNOWN
     Route: 061
     Dates: start: 2021, end: 2021

REACTIONS (6)
  - Skin exfoliation [Unknown]
  - Urticaria [Unknown]
  - Erythema [Unknown]
  - Pain [Unknown]
  - Pruritus [Unknown]
  - Reaction to excipient [Unknown]

NARRATIVE: CASE EVENT DATE: 2021
